FAERS Safety Report 8890185 (Version 2)
Quarter: 2012Q4

REPORT INFORMATION
  Report Type: 
  Country: GB (occurrence: GB)
  Receive Date: 20121107
  Receipt Date: 20121108
  Transmission Date: 20130627
  Serious: Yes (Disabling)
  Sender: FDA-Public Use
  Company Number: GB-JNJFOC-20121102834

PATIENT
  Age: 57 Year
  Sex: Female
  Weight: 83 kg

DRUGS (4)
  1. XARELTO [Suspect]
     Indication: POSTOPERATIVE CARE
     Route: 048
     Dates: start: 20120326, end: 20120329
  2. ETORICOXIB [Concomitant]
     Route: 065
  3. OMEPRAZOLE [Concomitant]
     Route: 065
  4. BENDROFLUAZIDE [Concomitant]
     Route: 065

REACTIONS (2)
  - Diarrhoea [Recovered/Resolved]
  - Nausea [Recovered/Resolved]
